FAERS Safety Report 4642574-1 (Version None)
Quarter: 2005Q2

REPORT INFORMATION
  Report Type: 
  Country: None (occurrence: None)
  Receive Date: 20050422
  Receipt Date: 20050316
  Transmission Date: 20051028
  Serious: Yes (Hospitalization)
  Sender: FDA-Public Use
  Company Number: US-MERCK-0503USA02824

PATIENT
  Age: 71 Year
  Sex: Female
  Weight: 45 kg

DRUGS (13)
  1. ZOCOR [Suspect]
     Indication: BLOOD CHOLESTEROL INCREASED
     Route: 048
     Dates: start: 20020827, end: 20050228
  2. ZOCOR [Suspect]
     Route: 048
     Dates: start: 20020405, end: 20020826
  3. ARICEPT [Concomitant]
     Route: 065
  4. AEROBID [Concomitant]
     Route: 055
  5. ALBUTEROL [Concomitant]
     Route: 055
  6. ASPIRIN [Concomitant]
     Route: 065
  7. VASOTEC [Concomitant]
     Route: 065
  8. FOSAMAX [Concomitant]
     Route: 065
  9. HUMULIN N [Concomitant]
     Route: 058
  10. PEPCID [Concomitant]
     Route: 065
  11. STARLIX [Concomitant]
     Route: 065
  12. BIAXIN [Suspect]
     Indication: PNEUMONIA
     Route: 065
     Dates: start: 20050214
  13. RADIOGRAPHIC CONTRAST MEDIUM (UNSPECIFIED) [Suspect]
     Route: 065

REACTIONS (15)
  - ABDOMINAL PAIN [None]
  - ASPARTATE AMINOTRANSFERASE INCREASED [None]
  - BLOOD ALKALINE PHOSPHATASE INCREASED [None]
  - CHOLELITHIASIS [None]
  - DEHYDRATION [None]
  - DRUG INTERACTION [None]
  - EFFUSION [None]
  - NEPHROPATHY [None]
  - NEPHROPATHY TOXIC [None]
  - PNEUMONIA [None]
  - RENAL FAILURE ACUTE [None]
  - RHABDOMYOLYSIS [None]
  - SPLEEN DISORDER [None]
  - URINARY RETENTION [None]
  - URINARY TRACT INFECTION [None]
